FAERS Safety Report 4655349-4 (Version None)
Quarter: 2005Q1

REPORT INFORMATION
  Report Type: 
  Country: None (occurrence: None)
  Receive Date: 20050331
  Receipt Date: 20040804
  Transmission Date: 20050727
  Serious: No
  Sender: FDA-Public Use
  Company Number: US086253

PATIENT
  Sex: Male
  Weight: 52.2 kg

DRUGS (6)
  1. NEULASTA [Suspect]
     Indication: CHEMOTHERAPY
     Dosage: 6 MG, 1 IN 1 DAYS, SC
     Route: 058
     Dates: start: 20040618
  2. FLUOROURACIL [Concomitant]
  3. FOLINIC ACID [Concomitant]
  4. OXALIPLATIN [Concomitant]
  5. GRANISETRON HCL [Concomitant]
  6. DEXAMETHASONE [Concomitant]

REACTIONS (5)
  - ABDOMINAL PAIN [None]
  - DIARRHOEA [None]
  - INJECTION SITE REACTION [None]
  - NAUSEA [None]
  - VOMITING [None]
